FAERS Safety Report 10073497 (Version 6)
Quarter: 2015Q4

REPORT INFORMATION
  Report Type: Report from Study
  Country: AU (occurrence: AU)
  Receive Date: 20140411
  Receipt Date: 20151113
  Transmission Date: 20160304
  Serious: Yes (Hospitalization, Other)
  Sender: FDA-Public Use
  Company Number: AU-VERTEX PHARMACEUTICALS INC-2014-001743

PATIENT
  Age: 12 Year
  Sex: Male
  Weight: 27 kg

DRUGS (24)
  1. SALT TABLETS [Concomitant]
     Active Substance: SODIUM CHLORIDE
     Indication: ELECTROLYTE SUBSTITUTION THERAPY
     Dosage: 6 TABS, QD
     Route: 048
     Dates: start: 201307
  2. HYPERTONIC SALINE SOLUTION [Concomitant]
     Active Substance: SODIUM CHLORIDE
     Indication: OBSTRUCTIVE AIRWAYS DISORDER
     Dosage: 5 ML, QD
     Route: 055
     Dates: start: 20131120, end: 20140407
  3. ABDECK VITAMIN [Concomitant]
     Indication: HYPOVITAMINOSIS
     Dosage: 2 TABS, QD
     Route: 048
     Dates: start: 2008
  4. NATURES OWN LIQUID FISH OIL [Concomitant]
     Indication: HYPOVITAMINOSIS
     Dosage: 2 CAPS, QD
     Route: 048
     Dates: start: 2006
  5. BACTRIM [Concomitant]
     Active Substance: SULFAMETHOXAZOLE\TRIMETHOPRIM
     Indication: INFECTIVE PULMONARY EXACERBATION OF CYSTIC FIBROSIS
     Dosage: 1.5 TABLS (80 MG/40 MG)
     Route: 048
     Dates: start: 20140401, end: 20140407
  6. CALOGEN [Concomitant]
     Indication: NUTRITIONAL SUPPLEMENTATION
     Dosage: 50 ML, BID
     Route: 048
     Dates: start: 20140409
  7. CENTRUM [Concomitant]
     Active Substance: VITAMINS
     Indication: NUTRITIONAL SUPPLEMENTATION
     Dosage: 1 DF, QD
     Route: 048
     Dates: start: 20140407, end: 20140410
  8. PHOSPHATE [Concomitant]
     Active Substance: UNSPECIFIED INGREDIENT
     Indication: NUTRITIONAL SUPPLEMENTATION
     Dosage: 250 MG, TID
     Route: 048
     Dates: start: 20140407, end: 20140410
  9. NUTRISON [Concomitant]
     Dosage: 850 ML, QD
     Route: 033
     Dates: start: 20140407, end: 20140407
  10. HEPARIN SALINE [Concomitant]
     Dosage: 4 ML, PRN
     Route: 040
     Dates: start: 20140410, end: 20140423
  11. CREON [Concomitant]
     Active Substance: PANCRELIPASE AMYLASE\PANCRELIPASE LIPASE\PANCRELIPASE PROTEASE
     Indication: PANCREATIC INSUFFICIENCY
     Dosage: 1 CAP, PRN
     Route: 048
     Dates: start: 201307
  12. NUTRISON [Concomitant]
     Dosage: 920 ML, QD
     Route: 033
     Dates: start: 20140410, end: 20140410
  13. HEPARIN SALINE [Concomitant]
     Indication: MEDICAL DEVICE COMPLICATION
     Dosage: 1:1000 + 1 ML N/SALINE
     Route: 040
     Dates: start: 20140321, end: 20140331
  14. THIAMINE. [Concomitant]
     Active Substance: THIAMINE
     Indication: NUTRITIONAL SUPPLEMENTATION
     Dosage: 100 MG, QD
     Route: 048
     Dates: start: 20140407, end: 20140410
  15. CREON [Concomitant]
     Active Substance: PANCRELIPASE AMYLASE\PANCRELIPASE LIPASE\PANCRELIPASE PROTEASE
     Indication: PANCREATIC INSUFFICIENCY
     Dosage: 1 CAP, PRN
     Route: 048
     Dates: start: 2001
  16. NUTRISON [Concomitant]
     Dosage: 1000 UNK, UNK
     Route: 033
     Dates: start: 20140412, end: 20140416
  17. BACTRIM DS [Concomitant]
     Active Substance: SULFAMETHOXAZOLE\TRIMETHOPRIM
     Indication: INFECTIVE PULMONARY EXACERBATION OF CYSTIC FIBROSIS
     Dosage: 1 TAB, BID
     Route: 048
     Dates: start: 20140318, end: 20140331
  18. NUTRISON [Concomitant]
     Dosage: 840 ML, QD
     Route: 033
     Dates: start: 20140408, end: 20140409
  19. NUTRISON [Concomitant]
     Dosage: 1050 UNK, UNK
     Route: 033
     Dates: start: 20140417
  20. URSO [Concomitant]
     Active Substance: URSODIOL
     Indication: CYSTIC FIBROSIS HEPATIC DISEASE
     Dosage: 250 MG, BID
     Route: 048
     Dates: start: 20131101
  21. MCT PROCAL [Concomitant]
     Indication: NUTRITIONAL SUPPLEMENTATION
     Dosage: 3 SACHETS
     Route: 048
     Dates: start: 20131216
  22. VX-809/VX-770 COMBINATION [Suspect]
     Active Substance: IVACAFTOR\LUMACAFTOR
     Indication: CYSTIC FIBROSIS
     Dosage: LUMACAFTOR 400MG/ IVACAFTOR 250MG BID
     Route: 048
     Dates: start: 20140317
  23. NUTRISON [Concomitant]
     Indication: NUTRITIONAL SUPPLEMENTATION
     Dosage: 500 ML, QD
     Route: 033
     Dates: start: 2006, end: 20140406
  24. NUTRISON [Concomitant]
     Dosage: 960 ML, QD
     Route: 033
     Dates: start: 20140411, end: 20140411

REACTIONS (2)
  - Infective pulmonary exacerbation of cystic fibrosis [Recovered/Resolved]
  - Weight decreased [Recovered/Resolved]

NARRATIVE: CASE EVENT DATE: 20140401
